FAERS Safety Report 13948147 (Version 3)
Quarter: 2017Q4

REPORT INFORMATION
  Report Type: Report from Study
  Country: ES (occurrence: ES)
  Receive Date: 20170908
  Receipt Date: 20171030
  Transmission Date: 20180320
  Serious: Yes (Hospitalization)
  Sender: FDA-Public Use
  Company Number: ES-ROCHE-1988733

PATIENT
  Age: 57 Year
  Sex: Female
  Weight: 51 kg

DRUGS (34)
  1. LORAZEPAM. [Concomitant]
     Active Substance: LORAZEPAM
     Route: 061
     Dates: start: 20170724
  2. HIBOR [Concomitant]
     Active Substance: BEMIPARIN SODIUM
     Indication: EMBOLISM
     Route: 058
     Dates: start: 20170901, end: 20170910
  3. COBIMETINIB. [Suspect]
     Active Substance: COBIMETINIB
     Indication: COLORECTAL CANCER
     Dosage: ON 24/JUL/2017, THE PATIENT RECEIVED MOST RECENT DOSE OF COBIMETINIB PRIOR TO THE EVENT (40 MG)? 60
     Route: 048
     Dates: start: 20170626
  4. BEVACIZUMAB. [Suspect]
     Active Substance: BEVACIZUMAB
     Indication: COLORECTAL CANCER
     Dosage: ON 24/JUL/2017, THE PATIENT RECEIVED MOST RECENT DOSE OF BEVACIZUMAB (5 MG/KG) PRIOR TO THE EVENT ON
     Route: 042
     Dates: start: 20170626
  5. IMIPENEM [Concomitant]
     Active Substance: IMIPENEM
     Indication: CHOLANGITIS
     Route: 042
     Dates: start: 20170919, end: 20170929
  6. PREDNISONA [Concomitant]
     Active Substance: PREDNISONE
     Indication: RASH MACULO-PAPULAR
     Route: 042
     Dates: start: 20170831, end: 20170906
  7. AMOXICILLIN/CLAVULANIC ACID [Concomitant]
     Active Substance: AMOXICILLIN\CLAVULANIC ACID
     Indication: PYREXIA
     Route: 048
     Dates: start: 20170916, end: 20170919
  8. ATEZOLIZUMAB. [Suspect]
     Active Substance: ATEZOLIZUMAB
     Indication: COLORECTAL CANCER
     Dosage: ON 24/JUL/2017, THE PATIENT RECEIVED MOST RECENT DOSE OF ATEZOLIZUMAB PRIOR TO THE EVENT ONSET (AT 1
     Route: 042
     Dates: start: 20170626
  9. LORAZEPAM. [Concomitant]
     Active Substance: LORAZEPAM
     Indication: PRURITUS
     Route: 048
  10. IMIPENEM [Concomitant]
     Active Substance: IMIPENEM
     Indication: PYREXIA
     Route: 042
     Dates: start: 20170906, end: 20170916
  11. PANTOPRAZOLE [Concomitant]
     Active Substance: PANTOPRAZOLE
     Route: 042
     Dates: start: 20170902, end: 20170906
  12. ZIVEREL [Concomitant]
     Route: 048
     Dates: start: 20170930
  13. EMULIQUEN LAXANTE (PARAFFIN/SODIUM PICOSULPHATE) [Concomitant]
     Indication: CONSTIPATION
     Route: 048
     Dates: start: 20170930
  14. MACROGOL [Concomitant]
     Active Substance: POLYETHYLENE GLYCOLS
     Indication: CONSTIPATION
     Route: 048
  15. HIBOR [Concomitant]
     Active Substance: BEMIPARIN SODIUM
     Route: 058
     Dates: start: 20170922, end: 20170927
  16. LEXATIN (SPAIN) [Concomitant]
     Indication: ANXIETY
     Route: 048
     Dates: start: 20170902, end: 20170906
  17. VANCOMYCIN [Concomitant]
     Active Substance: VANCOMYCIN
     Indication: INFECTION
     Route: 042
     Dates: start: 20170908, end: 20170915
  18. FLUCONAZOL [Concomitant]
     Active Substance: FLUCONAZOLE
     Indication: CHOLANGITIS
     Route: 048
     Dates: start: 20170919, end: 20170921
  19. LORATADINE. [Concomitant]
     Active Substance: LORATADINE
     Indication: PRURITUS
     Route: 061
     Dates: start: 20170724
  20. PIPERACILLIN/TAZOBACTAM [Concomitant]
     Active Substance: PIPERACILLIN SODIUM\TAZOBACTAM SODIUM
     Indication: PYREXIA
     Route: 042
     Dates: start: 20170903
  21. HIBOR [Concomitant]
     Active Substance: BEMIPARIN SODIUM
     Route: 058
     Dates: start: 20170913, end: 20170918
  22. POLARAMINE [Concomitant]
     Active Substance: DEXCHLORPHENIRAMINE MALEATE
     Route: 042
     Dates: start: 20170831, end: 20170831
  23. POLARAMINE [Concomitant]
     Active Substance: DEXCHLORPHENIRAMINE MALEATE
     Route: 042
     Dates: start: 20170831, end: 20170901
  24. PANTOPRAZOLE [Concomitant]
     Active Substance: PANTOPRAZOLE
     Route: 048
     Dates: start: 20170930
  25. PARACETAMOL [Concomitant]
     Active Substance: ACETAMINOPHEN
     Indication: PAIN
     Route: 048
  26. RIVAROXABAN [Concomitant]
     Active Substance: RIVAROXABAN
     Indication: EMBOLISM VENOUS
     Route: 048
     Dates: start: 201612
  27. TRAMADOL. [Concomitant]
     Active Substance: TRAMADOL
     Indication: MUCOSAL INFLAMMATION
     Route: 048
     Dates: start: 20170703
  28. HIBOR [Concomitant]
     Active Substance: BEMIPARIN SODIUM
     Route: 058
     Dates: start: 20170930
  29. POLARAMINE [Concomitant]
     Active Substance: DEXCHLORPHENIRAMINE MALEATE
     Route: 042
     Dates: start: 20170902, end: 20170904
  30. LEVOFLOXACINE [Concomitant]
     Active Substance: LEVOFLOXACIN
     Indication: PYREXIA
     Route: 048
     Dates: start: 20170916, end: 20170918
  31. FLUCONAZOL [Concomitant]
     Active Substance: FLUCONAZOLE
     Indication: PYREXIA
     Route: 048
     Dates: start: 20170908, end: 20170915
  32. URSODEOXYCHOLIC ACID [Concomitant]
     Active Substance: URSODIOL
     Route: 048
     Dates: start: 201612
  33. ZIVEREL [Concomitant]
     Route: 048
     Dates: start: 20170904, end: 20170904
  34. MOTILIUM [Concomitant]
     Active Substance: DOMPERIDONE
     Route: 048
     Dates: start: 20170930

REACTIONS (1)
  - Hyperbilirubinaemia [Not Recovered/Not Resolved]

NARRATIVE: CASE EVENT DATE: 20170710
